FAERS Safety Report 10258605 (Version 1)
Quarter: 2014Q2

REPORT INFORMATION
  Report Type: Spontaneous
  Country: US (occurrence: US)
  Receive Date: 20140625
  Receipt Date: 20140625
  Transmission Date: 20141212
  Serious: Yes (Other)
  Sender: FDA-Public Use
  Company Number: ALCN2014US003613

PATIENT
  Age: 75 Year
  Sex: Female

DRUGS (1)
  1. VIGAMOX [Suspect]
     Indication: CATARACT OPERATION
     Dosage: 1 GTT, QD
     Route: 047
     Dates: start: 20140531, end: 20140531

REACTIONS (4)
  - Palpitations [Recovered/Resolved]
  - Swollen tongue [Recovered/Resolved]
  - Nausea [Recovered/Resolved]
  - Visual acuity reduced transiently [Recovered/Resolved]
